FAERS Safety Report 8519315-0 (Version None)
Quarter: 2012Q3

REPORT INFORMATION
  Report Type: 
  Country: None (occurrence: None)
  Receive Date: 20120718
  Receipt Date: 20091013
  Transmission Date: 20120928
  Serious: Yes (Other)
  Sender: FDA-Public Use
  Company Number: CA-ROCHE-GNE289023

PATIENT
  Sex: Female

DRUGS (19)
  1. FLOVENT [Concomitant]
     Indication: PRODUCT USED FOR UNKNOWN INDICATION
  2. CYCLOBENAZPRINE [Concomitant]
     Indication: PRODUCT USED FOR UNKNOWN INDICATION
  3. CORTISONE ACETATE [Concomitant]
     Indication: PRODUCT USED FOR UNKNOWN INDICATION
  4. SINGULAIR [Concomitant]
     Indication: PRODUCT USED FOR UNKNOWN INDICATION
     Dosage: UNK
     Dates: start: 20090627
  5. ATROVENT [Concomitant]
     Indication: PRODUCT USED FOR UNKNOWN INDICATION
  6. SEREVENT [Concomitant]
     Indication: PRODUCT USED FOR UNKNOWN INDICATION
  7. SPIRIVA [Concomitant]
     Indication: PRODUCT USED FOR UNKNOWN INDICATION
  8. NASONEX [Concomitant]
     Indication: PRODUCT USED FOR UNKNOWN INDICATION
  9. ZOFRAN [Concomitant]
     Indication: PRODUCT USED FOR UNKNOWN INDICATION
  10. ALVESCO [Concomitant]
     Indication: PRODUCT USED FOR UNKNOWN INDICATION
  11. XOLAIR [Suspect]
     Indication: ASTHMA
     Route: 058
     Dates: start: 20090228, end: 20090918
  12. PREVACID [Concomitant]
     Indication: PRODUCT USED FOR UNKNOWN INDICATION
  13. DURATOCIN [Concomitant]
     Indication: PRODUCT USED FOR UNKNOWN INDICATION
  14. VENTOLIN [Concomitant]
     Indication: PRODUCT USED FOR UNKNOWN INDICATION
  15. DECADRON [Concomitant]
     Indication: PRODUCT USED FOR UNKNOWN INDICATION
  16. KETOROLAC TROMETHAMINE [Concomitant]
     Indication: PRODUCT USED FOR UNKNOWN INDICATION
  17. COMBIVENT [Concomitant]
     Indication: PRODUCT USED FOR UNKNOWN INDICATION
  18. ADVAIR DISKUS 100/50 [Concomitant]
     Indication: PRODUCT USED FOR UNKNOWN INDICATION
  19. BICITRA [Concomitant]
     Indication: PRODUCT USED FOR UNKNOWN INDICATION

REACTIONS (17)
  - VOMITING [None]
  - THROMBOSIS [None]
  - INFECTION [None]
  - CEREBROVASCULAR ACCIDENT [None]
  - MATERNAL EXPOSURE DURING PREGNANCY [None]
  - PNEUMONIA [None]
  - COMPLICATION OF DELIVERY [None]
  - OROPHARYNGEAL PAIN [None]
  - GASTRIC HYPERTONIA [None]
  - MYALGIA [None]
  - ANAPHYLACTIC SHOCK [None]
  - ARTHRITIS [None]
  - PAIN IN EXTREMITY [None]
  - DIZZINESS [None]
  - MALAISE [None]
  - HEADACHE [None]
  - NAUSEA [None]
